FAERS Safety Report 9938388 (Version 2)
Quarter: 2014Q1

REPORT INFORMATION
  Report Type: Report from Study
  Country: US (occurrence: US)
  Receive Date: 20140303
  Receipt Date: 20140303
  Transmission Date: 20141002
  Serious: No
  Sender: FDA-Public Use
  Company Number: US-ABBVIE-12P-163-1016803-00

PATIENT
  Age: 61 Year
  Sex: Female

DRUGS (4)
  1. HUMIRA [Suspect]
     Indication: COLITIS ULCERATIVE
     Route: 058
     Dates: start: 20121120, end: 20121120
  2. HUMIRA [Suspect]
     Route: 058
     Dates: start: 20121204, end: 20121204
  3. HUMIRA [Suspect]
     Route: 058
  4. LIALDA [Concomitant]
     Indication: COLITIS ULCERATIVE
     Dosage: 3 DAILY

REACTIONS (8)
  - Colitis ulcerative [Not Recovered/Not Resolved]
  - Diarrhoea [Not Recovered/Not Resolved]
  - Respiratory tract congestion [Unknown]
  - Cough [Unknown]
  - Wheezing [Unknown]
  - Upper respiratory tract infection [Recovered/Resolved]
  - Drug dose omission [Recovered/Resolved]
  - Colitis ulcerative [Recovered/Resolved]
